FAERS Safety Report 7578135-4 (Version None)
Quarter: 2011Q2

REPORT INFORMATION
  Report Type: 
  Country: None (occurrence: None)
  Receive Date: 20110628
  Receipt Date: 20110607
  Transmission Date: 20111010
  Serious: Yes (Hospitalization)
  Sender: FDA-Public Use
  Company Number: A0870727A

PATIENT
  Age: 64 Year
  Sex: Male
  Weight: 134.1 kg

DRUGS (10)
  1. LISINOPRIL [Concomitant]
  2. METFORMIN HCL [Concomitant]
  3. SIMVASTATIN [Concomitant]
  4. GLYBURIDE [Concomitant]
  5. HYDROCHLOROTHIAZIDE [Concomitant]
  6. GABAPENTIN [Concomitant]
  7. OXYCONTIN [Concomitant]
  8. METOPROLOL TARTRATE [Concomitant]
     Dates: end: 20050901
  9. AVANDIA [Suspect]
     Dosage: 8MG PER DAY
     Route: 048
     Dates: start: 20020101, end: 20070901
  10. OMEPRAZOLE [Concomitant]

REACTIONS (2)
  - MYOCARDIAL INFARCTION [None]
  - CARDIAC FAILURE [None]
